FAERS Safety Report 18810740 (Version 6)
Quarter: 2021Q2

REPORT INFORMATION
  Report Type: Report from Study
  Country: PT (occurrence: PT)
  Receive Date: 20210129
  Receipt Date: 20210513
  Transmission Date: 20210717
  Serious: Yes (Hospitalization)
  Sender: FDA-Public Use
  Company Number: NVSC2021PT013469

PATIENT
  Age: 50 Year
  Sex: Female
  Weight: 66 kg

DRUGS (12)
  1. SULFASALAZINE. [Concomitant]
     Active Substance: SULFASALAZINE
     Indication: ANKYLOSING SPONDYLITIS
     Dosage: 1000 MG, QD
     Route: 048
     Dates: start: 2011, end: 20190424
  2. SODOLAC [Concomitant]
     Active Substance: ETODOLAC
     Indication: ANKYLOSING SPONDYLITIS
     Dosage: UNK
     Route: 065
     Dates: start: 20190225, end: 20201230
  3. METHOTREXATE. [Concomitant]
     Active Substance: METHOTREXATE
     Indication: ANKYLOSING SPONDYLITIS
     Dosage: 12.5 MG, QW
     Route: 048
     Dates: start: 20111017, end: 20111218
  4. SULFASALAZINE. [Concomitant]
     Active Substance: SULFASALAZINE
     Dosage: 1 G, BID
     Route: 048
     Dates: start: 20190425, end: 20200108
  5. ESOMEPRAZOL [Concomitant]
     Active Substance: ESOMEPRAZOLE
     Indication: PROPHYLAXIS
     Dosage: 20 MG, QD
     Route: 048
     Dates: start: 20190225
  6. SULFASALAZINE. [Concomitant]
     Active Substance: SULFASALAZINE
     Dosage: 1 G, QD
     Route: 048
     Dates: start: 20200109, end: 20210119
  7. ACTIVELLE [Concomitant]
     Active Substance: ESTRADIOL\NORETHINDRONE ACETATE
     Indication: MENOPAUSE
     Dosage: 1+0.5 MG, QD
     Route: 048
     Dates: start: 2010, end: 202001
  8. SECUKINUMAB. [Suspect]
     Active Substance: SECUKINUMAB
     Indication: ANKYLOSING SPONDYLITIS
     Dosage: UNK
     Route: 058
     Dates: start: 20190327
  9. DEFLAZACORTE [Concomitant]
     Active Substance: DEFLAZACORT
     Indication: ANKYLOSING SPONDYLITIS
     Dosage: 6 MG, QD
     Route: 048
     Dates: start: 2010, end: 20181105
  10. METHOTREXATE. [Concomitant]
     Active Substance: METHOTREXATE
     Dosage: 15 MG, QW
     Route: 048
     Dates: start: 20111219, end: 20170716
  11. METHOTREXATE. [Concomitant]
     Active Substance: METHOTREXATE
     Dosage: 17.5 MG, QW
     Route: 048
     Dates: start: 20170717, end: 201711
  12. CALCIFEDIOL [Concomitant]
     Active Substance: CALCIFEDIOL
     Indication: VITAMIN D DEFICIENCY
     Dosage: 0.266 MG, QMO
     Route: 048
     Dates: start: 201811

REACTIONS (1)
  - Pyelonephritis [Recovered/Resolved]

NARRATIVE: CASE EVENT DATE: 20210116
